FAERS Safety Report 11533931 (Version 1)
Quarter: 2015Q3

REPORT INFORMATION
  Report Type: Spontaneous
  Country: US (occurrence: US)
  Receive Date: 20150922
  Receipt Date: 20150922
  Transmission Date: 20151125
  Serious: No
  Sender: FDA-Public Use
  Company Number: US-TEVA-588114USA

PATIENT
  Sex: Female

DRUGS (1)
  1. CARVEDILOL. [Suspect]
     Active Substance: CARVEDILOL
     Indication: HYPERTENSION
     Dosage: 50 MILLIGRAM DAILY; ONE TABLET IN THE MORNING, ONE TABLET AT NIGHT
     Route: 048
     Dates: start: 20150705

REACTIONS (4)
  - Vertigo [Recovered/Resolved]
  - Product substitution issue [Unknown]
  - Head discomfort [Recovered/Resolved]
  - Balance disorder [Recovered/Resolved]

NARRATIVE: CASE EVENT DATE: 20150705
